FAERS Safety Report 5631461-8 (Version None)
Quarter: 2008Q1

REPORT INFORMATION
  Report Type: 
  Country: None (occurrence: None)
  Receive Date: 20080215
  Receipt Date: 20080201
  Transmission Date: 20080703
  Serious: Yes (Hospitalization)
  Sender: FDA-Public Use
  Company Number: S08-USA-00239-01

PATIENT
  Age: 17 Year
  Sex: Female

DRUGS (5)
  1. LEXAPRO [Suspect]
     Indication: DEPRESSION
     Dosage: 20 MG QD PO
     Route: 048
     Dates: start: 20071201, end: 20080111
  2. LEXAPRO [Suspect]
     Indication: DEPRESSION
     Dosage: 10 MG QD PO
     Route: 048
     Dates: start: 20070101, end: 20070601
  3. LEXAPRO [Suspect]
     Indication: DEPRESSION
     Dosage: 20 MG QD PO
     Route: 048
     Dates: start: 20070601, end: 20071115
  4. MIDOL (IBUPROFEN) [Concomitant]
  5. ALPRAZOLAM [Concomitant]

REACTIONS (9)
  - ABDOMINAL PAIN [None]
  - ANAEMIA [None]
  - DIARRHOEA [None]
  - EOSINOPHIL COUNT INCREASED [None]
  - FAECES DISCOLOURED [None]
  - NAUSEA [None]
  - NEPHRITIS INTERSTITIAL [None]
  - RENAL FAILURE ACUTE [None]
  - VOMITING [None]
